FAERS Safety Report 8452479-6 (Version None)
Quarter: 2012Q2

REPORT INFORMATION
  Report Type: 
  Country: None (occurrence: None)
  Receive Date: 20120620
  Receipt Date: 20120412
  Transmission Date: 20120825
  Serious: No
  Sender: FDA-Public Use
  Company Number: US-VERTEX PHARMACEUTICALS INC.-AE-2012-005273

PATIENT
  Sex: Male
  Weight: 95.34 kg

DRUGS (3)
  1. COPEGUS [Concomitant]
     Indication: HEPATITIS C
     Route: 048
     Dates: start: 20120330
  2. PEGASYS [Concomitant]
     Indication: HEPATITIS C
     Dates: start: 20120330
  3. INCIVEK [Suspect]
     Indication: HEPATITIS C
     Route: 048
     Dates: start: 20120330

REACTIONS (9)
  - VISION BLURRED [None]
  - RASH PAPULAR [None]
  - PRURITUS [None]
  - ANORECTAL DISCOMFORT [None]
  - INJECTION SITE ERYTHEMA [None]
  - CHILLS [None]
  - MYALGIA [None]
  - DIARRHOEA [None]
  - ASTHENIA [None]
